FAERS Safety Report 7234132-X (Version None)
Quarter: 2010Q4

REPORT INFORMATION
  Report Type: 
  Country: None (occurrence: None)
  Receive Date: 20101130
  Receipt Date: 20100723
  Transmission Date: 20110411
  Serious: Yes (Other)
  Sender: FDA-Public Use
  Company Number: US201002003361

PATIENT
  Sex: Male
  Weight: 87.1 kg

DRUGS (2)
  1. BYETTA [Suspect]
     Dates: start: 20070801, end: 20091101
  2. EXENATIDE STRENGTH PEN, DISPOSABLE DEVICE (EXENATIDE PEN (UNKNOWN STRE [Concomitant]

REACTIONS (2)
  - NEPHROPATHY [None]
  - OFF LABEL USE [None]
